FAERS Safety Report 20044938 (Version 1)
Quarter: 2021Q4

REPORT INFORMATION
  Report Type: Report from Study
  Country: US (occurrence: US)
  Receive Date: 20211108
  Receipt Date: 20211108
  Transmission Date: 20220303
  Serious: Yes (Hospitalization, Other)
  Sender: FDA-Public Use
  Company Number: US-BRISTOL-MYERS SQUIBB COMPANY-BMS-2021-000830

PATIENT
  Age: 64 Year
  Sex: Male
  Weight: 93 kg

DRUGS (8)
  1. NIVOLUMAB [Suspect]
     Active Substance: NIVOLUMAB
     Indication: Renal cell carcinoma
     Dosage: UNK
     Route: 042
     Dates: start: 20201013
  2. NIVOLUMAB [Suspect]
     Active Substance: NIVOLUMAB
     Dosage: 301 MILLIGRAM
     Route: 042
     Dates: start: 20201201, end: 20201201
  3. IPILIMUMAB [Suspect]
     Active Substance: IPILIMUMAB
     Indication: Renal cell carcinoma
     Dosage: UNK
     Route: 042
     Dates: start: 20201013
  4. IPILIMUMAB [Suspect]
     Active Substance: IPILIMUMAB
     Dosage: 100 MILLIGRAM
     Route: 042
     Dates: start: 20201201, end: 20201201
  5. METRONIDAZOLE [Suspect]
     Active Substance: METRONIDAZOLE
     Indication: Helicobacter infection
     Dosage: UNK
     Route: 065
  6. AMOXICILLIN [Suspect]
     Active Substance: AMOXICILLIN
     Indication: Helicobacter infection
     Dosage: UNK
     Route: 065
  7. LEVOFLOXACIN [Suspect]
     Active Substance: LEVOFLOXACIN
     Indication: Helicobacter infection
     Dosage: UNK
     Route: 065
  8. TETRACYCLINE [Suspect]
     Active Substance: TETRACYCLINE
     Indication: Helicobacter infection
     Dosage: UNK
     Route: 065

REACTIONS (4)
  - Diarrhoea [Recovering/Resolving]
  - Colitis [Recovering/Resolving]
  - Hypokalaemia [Recovering/Resolving]
  - Abdominal pain [Recovering/Resolving]

NARRATIVE: CASE EVENT DATE: 20201212
